FAERS Safety Report 6816117-8 (Version None)
Quarter: 2010Q3

REPORT INFORMATION
  Report Type: 
  Country: None (occurrence: None)
  Receive Date: 20100702
  Receipt Date: 20100702
  Transmission Date: 20110219
  Serious: Yes (Other)
  Sender: FDA-Public Use
  Company Number: None

PATIENT

DRUGS (2)
  1. NITROGEN, COMPRESSED NF [Suspect]
     Indication: SURGERY
     Dates: start: 20100615
  2. NITROGEN, COMPRESSED NF [Suspect]
     Indication: SURGERY
     Dates: start: 20100617

REACTIONS (5)
  - EYE IRRITATION [None]
  - MALAISE [None]
  - MEDICAL DEVICE COMPLICATION [None]
  - NAUSEA [None]
  - PRODUCT ODOUR ABNORMAL [None]
